FAERS Safety Report 18168245 (Version 1)
Quarter: 2020Q3

REPORT INFORMATION
  Report Type: Spontaneous
  Country: US (occurrence: US)
  Receive Date: 20200818
  Receipt Date: 20200818
  Transmission Date: 20201103
  Serious: Yes (Other)
  Sender: FDA-Public Use
  Company Number: US-TEVA-2020-US-1816863

PATIENT
  Sex: Male

DRUGS (4)
  1. HYDRCODONE [Suspect]
     Active Substance: HYDROCODONE
     Route: 065
  2. TRAMADOL. [Suspect]
     Active Substance: TRAMADOL
     Route: 065
  3. OXYCODONE HYDROCHLORIDE. [Suspect]
     Active Substance: OXYCODONE HYDROCHLORIDE
     Route: 065
  4. ACETAMINOPHEN W/OXYCODONE [Suspect]
     Active Substance: ACETAMINOPHEN\OXYCODONE HYDROCHLORIDE
     Route: 065

REACTIONS (2)
  - Drug dependence [Unknown]
  - Overdose [Unknown]
